FAERS Safety Report 7339397-1 (Version None)
Quarter: 2011Q1

REPORT INFORMATION
  Report Type: 
  Country: None (occurrence: None)
  Receive Date: 20110308
  Receipt Date: 20110225
  Transmission Date: 20110831
  Serious: Yes (Hospitalization)
  Sender: FDA-Public Use
  Company Number: JP-AMGEN-JPNCT2011012825

PATIENT
  Age: 69 Year
  Sex: Female
  Weight: 56 kg

DRUGS (17)
  1. BLOPRESS [Concomitant]
     Indication: HYPERTENSION
     Route: 048
  2. TS 1 [Concomitant]
     Indication: COLORECTAL CANCER
     Route: 048
     Dates: start: 20100908
  3. DECADRON PHOSPHATE [Concomitant]
     Route: 042
  4. GASPORT-D [Concomitant]
     Indication: GASTRIC ULCER
     Route: 048
  5. MUCOSTA [Concomitant]
     Indication: GASTRIC ULCER
     Route: 048
  6. PANITUMUMAB [Suspect]
     Indication: COLORECTAL CANCER
     Dosage: 6 MG/KG, Q2WK
     Route: 041
     Dates: start: 20100908, end: 20101103
  7. KYTRIL [Concomitant]
     Route: 048
  8. GRANISETRON HCL [Concomitant]
     Route: 042
  9. DECADRON [Concomitant]
     Route: 048
  10. PANITUMUMAB [Suspect]
     Dosage: 6 MG/KG, Q2WK
     Route: 041
     Dates: start: 20101208, end: 20101222
  11. IRINOTECAN HYDROCHLORIDE [Concomitant]
     Indication: COLORECTAL CANCER
     Route: 041
     Dates: start: 20100908
  12. PYDOXAL [Concomitant]
     Route: 048
  13. BIOFERMIN [Concomitant]
     Route: 048
  14. TSUMURA HANGE-SHASHIN-TO [Concomitant]
     Route: 048
  15. HIRUDOID SOFT [Concomitant]
     Route: 062
  16. OPALMON [Concomitant]
     Indication: LUMBAR SPINAL STENOSIS
     Route: 048
  17. MINOCYCLINE HYDROCHLORIDE [Concomitant]
     Route: 048

REACTIONS (3)
  - SPINAL COMPRESSION FRACTURE [None]
  - DERMATITIS ACNEIFORM [None]
  - ORAL DISORDER [None]
